FAERS Safety Report 8603522-2 (Version None)
Quarter: 2012Q3

REPORT INFORMATION
  Report Type: 
  Country: None (occurrence: None)
  Receive Date: 20120817
  Receipt Date: 20120810
  Transmission Date: 20120928
  Serious: Yes (Hospitalization)
  Sender: FDA-Public Use
  Company Number: JP-PFIZER INC-2011271220

PATIENT
  Age: 75 Year
  Sex: Female
  Weight: 46.2 kg

DRUGS (3)
  1. KASHIWADOL [Concomitant]
     Indication: PAIN
     Dosage: UNK
     Dates: end: 20111031
  2. LYRICA [Suspect]
     Indication: LUMBAR RADICULOPATHY
     Dosage: 75 MG, 2X/DAY
     Route: 048
     Dates: start: 20111027, end: 20111031
  3. SELTOUCH [Concomitant]
     Indication: PAIN
     Dosage: UNK
     Dates: end: 20111031

REACTIONS (3)
  - HUMERUS FRACTURE [None]
  - DIZZINESS [None]
  - FALL [None]
